FAERS Safety Report 6479631-3 (Version None)
Quarter: 2009Q4

REPORT INFORMATION
  Report Type: 
  Country: None (occurrence: None)
  Receive Date: 20091208
  Receipt Date: 20091130
  Transmission Date: 20100525
  Serious: Yes (Hospitalization)
  Sender: FDA-Public Use
  Company Number: ES-ASTRAZENECA-2009SE29547

PATIENT
  Age: 77 Year
  Sex: Female

DRUGS (2)
  1. ZESTRIL [Suspect]
     Indication: HYPERTENSION
     Route: 048
     Dates: start: 20090101, end: 20090801
  2. ALDACTONE [Interacting]
     Indication: HYPERTENSION
     Route: 048
     Dates: start: 20090601, end: 20090801

REACTIONS (3)
  - DEPRESSED LEVEL OF CONSCIOUSNESS [None]
  - DRUG INTERACTION [None]
  - HYPERKALAEMIA [None]
